FAERS Safety Report 14658172 (Version 1)
Quarter: 2018Q1

REPORT INFORMATION
  Report Type: Report from Study
  Country: US (occurrence: US)
  Receive Date: 20180320
  Receipt Date: 20180320
  Transmission Date: 20180509
  Serious: Yes (Death)
  Sender: FDA-Public Use
  Company Number: US-CIPLA LTD.-2018US12319

PATIENT

DRUGS (4)
  1. CAPECITABINE. [Suspect]
     Active Substance: CAPECITABINE
     Indication: RECTAL CANCER
     Dosage: TWO 825 MG/M2, EVERY 12 HOURS MONDAY THROUGH FRIDAY OF ALL CHEMOTHERAPY CYCLES
     Route: 048
  2. CETUXIMAB. [Suspect]
     Active Substance: CETUXIMAB
     Dosage: 250 MG/M2, ON DAY 8, 15, 22 AND 29
     Route: 042
  3. CETUXIMAB. [Suspect]
     Active Substance: CETUXIMAB
     Indication: RECTAL CANCER
     Dosage: 400 MG/M2, LOADING DOSE ON DAY 1
     Route: 042
  4. OXALIPLATIN. [Suspect]
     Active Substance: OXALIPLATIN
     Indication: RECTAL CANCER
     Dosage: 50 MG/M2, ON DAY 1, 8, 15, 22 AND 29
     Route: 042

REACTIONS (1)
  - Death [Fatal]
